FAERS Safety Report 10666936 (Version 1)
Quarter: 2014Q4

REPORT INFORMATION
  Report Type: Spontaneous
  Country: US (occurrence: US)
  Receive Date: 20141222
  Receipt Date: 20141222
  Transmission Date: 20150529
  Serious: No
  Sender: FDA-Public Use
  Company Number: US-BIOGENIDEC-2014BI134192

PATIENT
  Sex: Female

DRUGS (1)
  1. AVONEX [Suspect]
     Active Substance: INTERFERON BETA-1A
     Indication: MULTIPLE SCLEROSIS
     Route: 030
     Dates: start: 20041101, end: 20131023

REACTIONS (7)
  - Feeling cold [Recovered/Resolved]
  - Pain [Recovered/Resolved]
  - Injection site pruritus [Recovered/Resolved]
  - Nervous system disorder [Not Recovered/Not Resolved]
  - Injection site pain [Recovered/Resolved]
  - Musculoskeletal stiffness [Recovered/Resolved]
  - Joint lock [Recovered/Resolved]

NARRATIVE: CASE EVENT DATE: 2007
